FAERS Safety Report 5991068-X (Version None)
Quarter: 2008Q4

REPORT INFORMATION
  Report Type: 
  Country: None (occurrence: None)
  Receive Date: 20081202
  Receipt Date: 20080111
  Transmission Date: 20090506
  Serious: Yes (Disabling)
  Sender: FDA-Public Use
  Company Number: WAES 0704USA06010

PATIENT
  Age: 52 Year
  Sex: Female

DRUGS (2)
  1. FOSAMAX [Suspect]
     Indication: OSTEOPENIA
     Dosage: 70 MG/WKY/PO
     Route: 048
     Dates: start: 20030301, end: 20060501
  2. CALCIUM (UNSPECIFIED) [Concomitant]

REACTIONS (9)
  - ADVERSE EVENT [None]
  - ARTHRALGIA [None]
  - CONSTIPATION [None]
  - GINGIVAL DISORDER [None]
  - OSTEOPOROSIS [None]
  - RECTAL POLYP [None]
  - RESORPTION BONE INCREASED [None]
  - SINUSITIS [None]
  - SKIN LESION [None]
